FAERS Safety Report 6248703-0 (Version None)
Quarter: 2009Q2

REPORT INFORMATION
  Report Type: 
  Country: None (occurrence: None)
  Receive Date: 20090624
  Receipt Date: 20090608
  Transmission Date: 20091009
  Serious: Yes (Hospitalization)
  Sender: FDA-Public Use
  Company Number: 2009AL000590

PATIENT
  Age: 54 Year
  Sex: Female

DRUGS (12)
  1. DIGOXIN [Suspect]
     Dosage: 0.25MG, DAILY,PO
     Route: 048
  2. XANAX [Concomitant]
  3. LEXAPRO [Concomitant]
  4. LANTUS [Concomitant]
  5. TYLENOL (CAPLET) [Concomitant]
  6. ALDACTONE [Concomitant]
  7. LAC-HYDRIN [Concomitant]
  8. BAZA [Concomitant]
  9. LASIX [Concomitant]
  10. LEVAQUIN [Concomitant]
  11. BENAZEPRIL HYDROCHLORIDE [Concomitant]
  12. PEPCID [Concomitant]

REACTIONS (17)
  - ANHEDONIA [None]
  - ANXIETY [None]
  - BACK PAIN [None]
  - CHEST PAIN [None]
  - DYSPNOEA [None]
  - EAR PAIN [None]
  - ECONOMIC PROBLEM [None]
  - EMOTIONAL DISTRESS [None]
  - FLUID OVERLOAD [None]
  - HYPOGLYCAEMIA [None]
  - ILL-DEFINED DISORDER [None]
  - MENTAL DISORDER [None]
  - MULTIPLE INJURIES [None]
  - PAIN [None]
  - PALPITATIONS [None]
  - PANIC ATTACK [None]
  - POSTNASAL DRIP [None]
